FAERS Safety Report 9941886 (Version 2)
Quarter: 2014Q1

REPORT INFORMATION
  Report Type: Report from Study
  Country: US (occurrence: US)
  Receive Date: 20140303
  Receipt Date: 20140303
  Transmission Date: 20141002
  Serious: Yes (Hospitalization)
  Sender: FDA-Public Use
  Company Number: US-ABBVIE-12P-163-1013353-00

PATIENT
  Age: 56 Year
  Sex: Male
  Weight: 118.04 kg

DRUGS (1)
  1. HUMIRA PEN [Suspect]
     Indication: PSORIASIS
     Dosage: 2 PENS DAY 1, THEN 1 PEN DAY 8
     Route: 058
     Dates: start: 20121031, end: 20121114

REACTIONS (1)
  - Skin infection [Unknown]
